FAERS Safety Report 25963174 (Version 2)
Quarter: 2025Q4

REPORT INFORMATION
  Report Type: Report from Study
  Country: AU (occurrence: None)
  Receive Date: 20251027
  Receipt Date: 20251229
  Transmission Date: 20260118
  Serious: Yes (Life-Threatening, Hospitalization, Other)
  Sender: UCB
  Company Number: AU-UCBSA-2025066241

PATIENT

DRUGS (1)
  1. CERTOLIZUMAB PEGOL [Suspect]
     Active Substance: CERTOLIZUMAB PEGOL
     Indication: Axial spondyloarthritis
     Dosage: 200 MILLIGRAM, EV 2 WEEKS(QOW)

REACTIONS (4)
  - Dyspnoea [Recovering/Resolving]
  - Premature baby [Not Recovered/Not Resolved]
  - Maternal exposure during pregnancy [Unknown]
  - Exposure via breast milk [Unknown]
